FAERS Safety Report 4967116-2 (Version None)
Quarter: 2006Q2

REPORT INFORMATION
  Report Type: 
  Country: None (occurrence: None)
  Receive Date: 20060403
  Receipt Date: 20060321
  Transmission Date: 20061013
  Serious: Yes (Death)
  Sender: FDA-Public Use
  Company Number: 8015752

PATIENT
  Age: 14 Year
  Sex: Male

DRUGS (1)
  1. KEPPRA [Suspect]
     Indication: CONVULSION
     Dosage: ONCE
     Dates: start: 20060316, end: 20060316

REACTIONS (1)
  - SUDDEN DEATH [None]
